FAERS Safety Report 7895200 (Version 2)
Quarter: 2014Q2

REPORT INFORMATION
  Report Type: Spontaneous
  Country: US (occurrence: None)
  Receive Date: 20110322
  Receipt Date: 20140618
  Transmission Date: 20141212
  Serious: Yes (Other)
  Sender: FDA-Public Use
  Company Number: AUR-APL-2011-00912

PATIENT
  Age: 48 Year
  Sex: Male

DRUGS (1)
  1. METOPROLOL TARTRATE [Suspect]
     Indication: HYPERTENSION
     Dosage: 12.5 MG, BID

REACTIONS (5)
  - Hypotension [None]
  - Stress cardiomyopathy [None]
  - Chest pain [None]
  - Electrocardiogram ST segment elevation [None]
  - Blood pressure decreased [None]
